FAERS Safety Report 5044314-3 (Version None)
Quarter: 2006Q2

REPORT INFORMATION
  Report Type: 
  Country: None (occurrence: None)
  Receive Date: 20060629
  Receipt Date: 20060615
  Transmission Date: 20061013
  Serious: Yes (Other)
  Sender: FDA-Public Use
  Company Number: 2006065536

PATIENT
  Age: 29 Year
  Sex: Male
  Weight: 80 kg

DRUGS (8)
  1. ZYVOX [Suspect]
     Indication: STAPHYLOCOCCAL INFECTION
     Dosage: 600 MG, 1 IN 1 D, INTRAVENOUS
     Route: 042
     Dates: start: 20060513, end: 20060513
  2. PHENYTOIN [Concomitant]
  3. PENTOTAL                         (THIOPENTAL SODIUM) [Concomitant]
  4. PIPERACILLIN-TAZOBACTAM                   (PIPERACILLIN, TAZOBACTAM) [Concomitant]
  5. PANTOPRAZOLE SODIUM [Concomitant]
  6. MANNITOL [Concomitant]
  7. ACETAMINOPHEN [Concomitant]
  8. KETOROLA C                         (TORADOL) (KETOROLAC TROMETHAMINE) [Concomitant]

REACTIONS (2)
  - DERMATITIS EXFOLIATIVE [None]
  - RASH [None]
